FAERS Safety Report 16074544 (Version 1)
Quarter: 2019Q1

REPORT INFORMATION
  Report Type: Spontaneous
  Country: US (occurrence: US)
  Receive Date: 20190314
  Receipt Date: 20190314
  Transmission Date: 20190418
  Serious: No
  Sender: FDA-Public Use
  Company Number: US-TEVA-2019-US-1013854

PATIENT
  Sex: Female
  Weight: 125 kg

DRUGS (10)
  1. CLONIDINE. [Concomitant]
     Active Substance: CLONIDINE
  2. GABAPENTIN. [Concomitant]
     Active Substance: GABAPENTIN
  3. TOLTERODINE [Concomitant]
     Active Substance: TOLTERODINE
  4. AMRIX [Suspect]
     Active Substance: CYCLOBENZAPRINE HYDROCHLORIDE
     Indication: NEURALGIA
     Dosage: ONE CAPSULE DAILY AT NIGHT
     Route: 065
  5. LATUDA [Concomitant]
     Active Substance: LURASIDONE HYDROCHLORIDE
  6. KLONOPIN [Concomitant]
     Active Substance: CLONAZEPAM
  7. SUBUTEX [Concomitant]
     Active Substance: BUPRENORPHINE HYDROCHLORIDE
  8. BENTYL [Concomitant]
     Active Substance: DICYCLOMINE HYDROCHLORIDE
  9. NEXIUM [Concomitant]
     Active Substance: ESOMEPRAZOLE MAGNESIUM
  10. FENTANYL. [Concomitant]
     Active Substance: FENTANYL

REACTIONS (8)
  - Product use in unapproved indication [Unknown]
  - Inappropriate schedule of product administration [Unknown]
  - Nightmare [Unknown]
  - Breakthrough pain [Unknown]
  - Emotional distress [Unknown]
  - Hypoaesthesia [Unknown]
  - Burning sensation [Unknown]
  - Diarrhoea [Unknown]
